FAERS Safety Report 7040545-1 (Version None)
Quarter: 2010Q4

REPORT INFORMATION
  Report Type: 
  Country: None (occurrence: None)
  Receive Date: 20101006
  Receipt Date: 20101005
  Transmission Date: 20110411
  Serious: Yes (Other)
  Sender: FDA-Public Use
  Company Number: 1022556-2010-00062

PATIENT
  Sex: Female

DRUGS (1)
  1. ACT TOTAL CARE ICY CLEAN MINT MOUTHWASH 18 OZ [Suspect]
     Indication: DENTAL DISORDER PROPHYLAXIS
     Dosage: TOPICAL, OD
     Route: 061

REACTIONS (3)
  - AGEUSIA [None]
  - DYSGEUSIA [None]
  - PRODUCT TASTE ABNORMAL [None]
